FAERS Safety Report 4948430-3 (Version None)
Quarter: 2006Q1

REPORT INFORMATION
  Report Type: 
  Country: None (occurrence: None)
  Receive Date: 20060320
  Receipt Date: 20060310
  Transmission Date: 20060701
  Serious: Yes (Hospitalization)
  Sender: FDA-Public Use
  Company Number: BE-ABBOTT-06P-013-0327561-00

PATIENT
  Age: 22 Year
  Sex: Female

DRUGS (1)
  1. DEPAKENE [Suspect]
     Indication: OVERDOSE
     Route: 048
     Dates: start: 20060228, end: 20060228

REACTIONS (3)
  - INTENTIONAL OVERDOSE [None]
  - SOMNOLENCE [None]
  - SUICIDE ATTEMPT [None]
